FAERS Safety Report 9425781 (Version 3)
Quarter: 2013Q4

REPORT INFORMATION
  Report Type: Spontaneous
  Country: US (occurrence: US)
  Receive Date: 20130729
  Receipt Date: 20131003
  Transmission Date: 20140711
  Serious: No
  Sender: FDA-Public Use
  Company Number: US-PFIZER INC-2013217505

PATIENT
  Age: 56 Year
  Sex: Female
  Weight: 49.89 kg

DRUGS (1)
  1. PREMARIN [Suspect]
     Indication: MENOPAUSAL SYMPTOMS
     Dosage: 0.625 MG, 1X/DAY
     Route: 048

REACTIONS (9)
  - Migraine [Unknown]
  - Alopecia [Unknown]
  - Agitation [Unknown]
  - Tremor [Unknown]
  - Drug ineffective [Unknown]
  - Hot flush [Unknown]
  - Irritability [Unknown]
  - Mood swings [Unknown]
  - Crying [Unknown]
